FAERS Safety Report 11682406 (Version 1)
Quarter: 2015Q4

REPORT INFORMATION
  Report Type: Report from Study
  Country: US (occurrence: US)
  Receive Date: 20151029
  Receipt Date: 20151029
  Transmission Date: 20160304
  Serious: Yes (Hospitalization)
  Sender: FDA-Public Use
  Company Number: US-ROCHE-1652540

PATIENT
  Age: 68 Year
  Sex: Female

DRUGS (3)
  1. TRASTUZUMAB [Suspect]
     Active Substance: TRASTUZUMAB
     Indication: PRODUCT USED FOR UNKNOWN INDICATION
     Route: 065
  2. PERTUZUMAB [Suspect]
     Active Substance: PERTUZUMAB
     Indication: PRODUCT USED FOR UNKNOWN INDICATION
     Route: 065
  3. GEMCITABINE [Suspect]
     Active Substance: GEMCITABINE\GEMCITABINE HYDROCHLORIDE
     Indication: PRODUCT USED FOR UNKNOWN INDICATION
     Route: 065

REACTIONS (3)
  - Neutropenia [Unknown]
  - Haemorrhage [Unknown]
  - Thrombocytopenia [Unknown]

NARRATIVE: CASE EVENT DATE: 20150528
